FAERS Safety Report 18211113 (Version 1)
Quarter: 2020Q3

REPORT INFORMATION
  Report Type: Spontaneous
  Country: US (occurrence: US)
  Receive Date: 20200830
  Receipt Date: 20200830
  Transmission Date: 20201103
  Serious: Yes (Other)
  Sender: FDA-Public Use
  Company Number: US-BEH-2020121587

PATIENT
  Age: 10 Year
  Sex: Female

DRUGS (2)
  1. BERINERT [Suspect]
     Active Substance: HUMAN C1-ESTERASE INHIBITOR
     Indication: SIDEROBLASTIC ANAEMIA
     Dosage: 500 INTERNATIONAL UNIT, PRN
     Route: 042
     Dates: start: 20190716
  2. BERINERT [Suspect]
     Active Substance: HUMAN C1-ESTERASE INHIBITOR
     Indication: SIDEROBLASTIC ANAEMIA
     Dosage: 500 INTERNATIONAL UNIT, PRN
     Route: 042
     Dates: start: 20190716

REACTIONS (3)
  - Abdominal distension [Not Recovered/Not Resolved]
  - No adverse event [Unknown]
  - Product use in unapproved indication [Unknown]

NARRATIVE: CASE EVENT DATE: 20200814
